FAERS Safety Report 23848293 (Version 1)
Quarter: 2024Q2

REPORT INFORMATION
  Report Type: Spontaneous
  Country: US (occurrence: US)
  Receive Date: 20240513
  Receipt Date: 20240513
  Transmission Date: 20240715
  Serious: No
  Sender: FDA-Public Use
  Company Number: US-BAYER-2024A064273

PATIENT
  Age: 25 Year
  Sex: Female

DRUGS (1)
  1. MIRENA [Suspect]
     Active Substance: LEVONORGESTREL
     Dosage: 20?G/DAY
     Route: 015
     Dates: start: 20240423, end: 20240426

REACTIONS (3)
  - Back pain [Recovering/Resolving]
  - Device expulsion [Recovered/Resolved]
  - Device issue [None]

NARRATIVE: CASE EVENT DATE: 20240401
